FAERS Safety Report 17561700 (Version 1)
Quarter: 2020Q1

REPORT INFORMATION
  Report Type: Spontaneous
  Country: US (occurrence: US)
  Receive Date: 20200319
  Receipt Date: 20200319
  Transmission Date: 20200409
  Serious: Yes (Hospitalization)
  Sender: FDA-Public Use
  Company Number: None

PATIENT
  Age: 63 Year
  Sex: Female
  Weight: 53.1 kg

DRUGS (7)
  1. PACLITAXEL. [Concomitant]
     Active Substance: PACLITAXEL
     Dates: start: 20200312, end: 20200312
  2. UDENYCA [Suspect]
     Active Substance: PEGFILGRASTIM-CBQV
     Indication: FEBRILE NEUTROPENIA
     Dosage: ?          OTHER FREQUENCY:ONE TIME DOSE;?
     Route: 058
     Dates: start: 20200313, end: 20200313
  3. DEXAMETHASONE. [Concomitant]
     Active Substance: DEXAMETHASONE
     Dates: start: 20200312, end: 20200312
  4. DIPHENHYDRAMINE. [Concomitant]
     Active Substance: DIPHENHYDRAMINE
     Dates: start: 20200312, end: 20200312
  5. PALONOSETRON. [Concomitant]
     Active Substance: PALONOSETRON HYDROCHLORIDE
     Dates: start: 20200312, end: 20200312
  6. FAMOTIDINE. [Concomitant]
     Active Substance: FAMOTIDINE
     Dates: start: 20200312, end: 20200312
  7. CARBOPLATIN. [Concomitant]
     Active Substance: CARBOPLATIN
     Dates: start: 20200312, end: 20200312

REACTIONS (5)
  - Endometrial cancer recurrent [None]
  - Neutrophil count decreased [None]
  - Treatment failure [None]
  - Infection [None]
  - White blood cell count decreased [None]

NARRATIVE: CASE EVENT DATE: 20200318
